FAERS Safety Report 18224169 (Version 1)
Quarter: 2020Q3

REPORT INFORMATION
  Report Type: Spontaneous
  Country: FR (occurrence: FR)
  Receive Date: 20200902
  Receipt Date: 20200902
  Transmission Date: 20201103
  Serious: Yes (Death, Hospitalization)
  Sender: FDA-Public Use
  Company Number: FR-PFIZER INC-2020336488

PATIENT
  Age: 48 Year
  Sex: Male
  Weight: 94 kg

DRUGS (19)
  1. PANTOPRAZOLE [Concomitant]
     Active Substance: PANTOPRAZOLE
     Dosage: 20 MG, 1X/DAY
  2. MORPHINE [Concomitant]
     Active Substance: MORPHINE
     Dosage: UNK
     Route: 042
  3. DOLIPRANE [Concomitant]
     Active Substance: ACETAMINOPHEN
     Dosage: 8 DF, 1X/DAY
     Route: 048
  4. LEVOTHYROX [Concomitant]
     Active Substance: LEVOTHYROXINE
     Dosage: 137.5 UG, 1X/DAY
  5. SOLUVIT N [ACETIC ACID;ASCORBIC ACID;BIOTIN;CYANOCOBALAMIN;FOLIC ACID; [Concomitant]
     Active Substance: VITAMINS
     Dosage: UNK
  6. GAVISCON ADVANCE [SODIUM ALGINATE] [Concomitant]
     Dosage: 1 DF, AS NEEDED
     Route: 048
  7. VITALIPIDE [Concomitant]
     Dosage: UNK
  8. HEMOCLAR [PENTOSAN POLYSULFATE SODIUM] [Concomitant]
     Dosage: UNK
  9. IMOVANE [Concomitant]
     Active Substance: ZOPICLONE
     Dosage: 7.5 MG, 1X/DAY
  10. METHYLPREDNISOLONE. [Suspect]
     Active Substance: METHYLPREDNISOLONE
     Indication: INFLAMMATION
     Dosage: 120 MG, 1X/DAY
  11. OPDIVO [Suspect]
     Active Substance: NIVOLUMAB
     Indication: CLEAR CELL RENAL CELL CARCINOMA
     Dosage: 1 DF, CYCLIC
     Route: 041
     Dates: start: 20160909, end: 20200221
  12. ALPRAZOLAM. [Concomitant]
     Active Substance: ALPRAZOLAM
     Dosage: 0.5 MG, 1X/DAY (+ 0.25 MG IF NEEDED)
  13. SPASFON [PHLOROGLUCINOL;TRIMETHYLPHLOROGLUCINOL] [Concomitant]
     Active Substance: PHLOROGLUCINOL\1,3,5-TRIMETHOXYBENZENE
     Dosage: 80 MG, AS NEEDED
  14. NEFOPAM HYDROCHLORIDE [Concomitant]
     Active Substance: NEFOPAM HYDROCHLORIDE
     Dosage: UNK
  15. SUPPLIVEN [Concomitant]
     Dosage: UNK
  16. FUROSEMID [Concomitant]
     Active Substance: FUROSEMIDE
     Dosage: 80 MG, 1X/DAY
  17. AMOXICILLIN. [Concomitant]
     Active Substance: AMOXICILLIN
     Dosage: 3 G, 1X/DAY
     Dates: start: 20200801
  18. SMOFKABIVEN EF [Concomitant]
     Active Substance: AMINO ACIDS\DEXTROSE\SOYBEAN OIL
     Dosage: UNK
  19. LOVENOX [Concomitant]
     Active Substance: ENOXAPARIN SODIUM
     Dosage: 1 DF, 1X/DAY
     Route: 058

REACTIONS (4)
  - Erysipelas [Fatal]
  - Necrotising fasciitis [Fatal]
  - Septic shock [Fatal]
  - Multiple organ dysfunction syndrome [Fatal]

NARRATIVE: CASE EVENT DATE: 2020
